FAERS Safety Report 8094434-4 (Version None)
Quarter: 2012Q1

REPORT INFORMATION
  Report Type: 
  Country: None (occurrence: None)
  Receive Date: 20120130
  Receipt Date: 20120118
  Transmission Date: 20120608
  Serious: Yes (Hospitalization)
  Sender: FDA-Public Use
  Company Number: US-JNJFOC-20120107796

PATIENT
  Sex: Female
  Weight: 57.15 kg

DRUGS (2)
  1. REMICADE [Suspect]
     Indication: RHEUMATOID ARTHRITIS
     Dosage: 4 BAGS EVERY 8 WEEKS
     Route: 042
  2. REMICADE [Suspect]
     Dosage: 3 BAGS EVERY 8 WEEKS
     Route: 042

REACTIONS (3)
  - GROIN PAIN [None]
  - ATRIAL FIBRILLATION [None]
  - BODY HEIGHT DECREASED [None]
